FAERS Safety Report 11225983 (Version 2)
Quarter: 2015Q2

REPORT INFORMATION
  Report Type: Spontaneous
  Country: NL (occurrence: NL)
  Receive Date: 20150629
  Receipt Date: 20150630
  Transmission Date: 20150821
  Serious: Yes (Other)
  Sender: FDA-Public Use
  Company Number: PHHY2015NL074431

PATIENT
  Age: 37 Year
  Sex: Female

DRUGS (5)
  1. LAMOTRIGINE. [Suspect]
     Active Substance: LAMOTRIGINE
     Indication: SEIZURE
     Route: 065
  2. ETHOSUXIMIDE. [Suspect]
     Active Substance: ETHOSUXIMIDE
     Indication: SEIZURE
     Route: 065
  3. VALPROIC ACID. [Suspect]
     Active Substance: VALPROIC ACID
     Indication: SEIZURE
     Route: 065
  4. CARBAMAZEPINE. [Suspect]
     Active Substance: CARBAMAZEPINE
     Indication: SEIZURE
     Dosage: 500 MG, UNK
     Route: 065
  5. CLONAZEPAM. [Suspect]
     Active Substance: CLONAZEPAM
     Indication: SEIZURE
     Route: 065

REACTIONS (1)
  - Generalised tonic-clonic seizure [Unknown]
